FAERS Safety Report 7223914-6 (Version None)
Quarter: 2011Q1

REPORT INFORMATION
  Report Type: 
  Country: None (occurrence: None)
  Receive Date: 20110113
  Receipt Date: 20110107
  Transmission Date: 20110831
  Serious: Yes (Hospitalization)
  Sender: FDA-Public Use
  Company Number: US-BIOGENIDEC-2011BI001036

PATIENT
  Age: 29 Year
  Sex: Female
  Weight: 99 kg

DRUGS (2)
  1. AVONEX [Suspect]
     Route: 030
     Dates: start: 20060101
  2. AVONEX [Suspect]
     Indication: MULTIPLE SCLEROSIS
     Route: 030
     Dates: start: 20010101, end: 20060101

REACTIONS (6)
  - MULTIPLE SCLEROSIS RELAPSE [None]
  - INTERVERTEBRAL DISC PROTRUSION [None]
  - INSOMNIA [None]
  - HYPOAESTHESIA [None]
  - GASTRIC ULCER [None]
  - TOOTHACHE [None]
